FAERS Safety Report 4524606-4 (Version None)
Quarter: 2004Q4

REPORT INFORMATION
  Report Type: 
  Country: None (occurrence: None)
  Receive Date: 20041117
  Receipt Date: 20040804
  Transmission Date: 20050328
  Serious: Yes (Hospitalization)
  Sender: FDA-Public Use
  Company Number: US-JNJFOC-20040801904

PATIENT
  Age: 76 Year
  Sex: Male
  Weight: 74.8435 kg

DRUGS (8)
  1. LEVAQUIN [Suspect]
     Indication: LUNG DISORDER
     Dosage: 750 MG, ORAL
     Route: 048
     Dates: start: 20031201
  2. ISOSORBIDE (ISOSORBIDE) [Concomitant]
  3. FUROSEMIDE [Concomitant]
  4. PREVACID [Concomitant]
  5. ASPIRIN [Concomitant]
  6. PLAVIX [Concomitant]
  7. COREG (CARVEDIOLOL) [Concomitant]
  8. PREDNISONE [Concomitant]

REACTIONS (2)
  - MYOCARDIAL INFARCTION [None]
  - TENDON DISORDER [None]
